FAERS Safety Report 8610932-6 (Version None)
Quarter: 2012Q3

REPORT INFORMATION
  Report Type: 
  Country: None (occurrence: None)
  Receive Date: 20120822
  Receipt Date: 20120817
  Transmission Date: 20120928
  Serious: Yes (Death, Hospitalization)
  Sender: FDA-Public Use
  Company Number: CA-SANOFI-AVENTIS-2012SA059384

PATIENT
  Age: 82 Year
  Sex: Male
  Weight: 71.7 kg

DRUGS (5)
  1. METOPROLOL TARTRATE [Concomitant]
  2. TAMSULOSIN HYDROCHLORIDE [Concomitant]
  3. WARFARIN SODIUM [Concomitant]
  4. LEUPROLIDE ACETATE [Suspect]
     Dosage: FREQUENCY: 3 MONTHS
     Route: 065
     Dates: start: 20100422, end: 20100422
  5. SYNTHROID [Concomitant]

REACTIONS (2)
  - EMBOLISM ARTERIAL [None]
  - DEATH [None]
